FAERS Safety Report 5158575-3 (Version None)
Quarter: 2006Q4

REPORT INFORMATION
  Report Type: 
  Country: None (occurrence: None)
  Receive Date: 20061128
  Receipt Date: 20061122
  Transmission Date: 20070319
  Serious: Yes (Other)
  Sender: FDA-Public Use
  Company Number: GB-GLAXOSMITHKLINE-B0447679A

PATIENT
  Sex: Male

DRUGS (1)
  1. NIQUITIN CQ GUM 4MG [Suspect]
     Dosage: 12GUM PER DAY
     Route: 002
     Dates: start: 20040101

REACTIONS (1)
  - DEPENDENCE [None]
